FAERS Safety Report 18443278 (Version 1)
Quarter: 2020Q4

REPORT INFORMATION
  Report Type: Report from Study
  Country: CA (occurrence: CA)
  Receive Date: 20201029
  Receipt Date: 20201029
  Transmission Date: 20210114
  Serious: Yes (Other)
  Sender: FDA-Public Use
  Company Number: CA-TAKEDA-2020TUS035878

PATIENT
  Age: 65 Year
  Sex: Female

DRUGS (12)
  1. METFORMIN [Concomitant]
     Active Substance: METFORMIN HYDROCHLORIDE
     Dosage: UNK UNK, QD
  2. TEMAZEPAM. [Concomitant]
     Active Substance: TEMAZEPAM
     Dosage: 50 MILLIGRAM, QD
  3. AMLODIPINE [Concomitant]
     Active Substance: AMLODIPINE BESYLATE
     Dosage: 10 MILLIGRAM, QD
  4. VITAMIN B [Concomitant]
     Active Substance: VITAMIN B
     Dosage: UNK UNK, MONTHLY
  5. ASACOL [Concomitant]
     Active Substance: MESALAMINE
     Dosage: UNK UNK, QD
     Dates: start: 20120102
  6. PANTOPRAZOLE [Concomitant]
     Active Substance: PANTOPRAZOLE
     Dosage: 40 MILLIGRAM, QD
  7. VEDOLIZUMAB [Suspect]
     Active Substance: VEDOLIZUMAB
     Indication: COLITIS ULCERATIVE
     Dosage: 300 MILLIGRAM
     Route: 042
     Dates: start: 20170928
  8. RISPERIDONE. [Concomitant]
     Active Substance: RISPERIDONE
     Dosage: UNK UNK, MONTHLY
  9. ATORVASTATIN [Concomitant]
     Active Substance: ATORVASTATIN
     Dosage: 10 MILLIGRAM, QD
  10. VENLAFAXINE [Concomitant]
     Active Substance: VENLAFAXINE HYDROCHLORIDE
     Dosage: UNK UNK, QD
  11. HYDRAZIDE                          /00022001/ [Concomitant]
     Dosage: 25 MILLIGRAM, QD
  12. ATIVAN [Concomitant]
     Active Substance: LORAZEPAM
     Dosage: UNK

REACTIONS (2)
  - Hypoxia [Unknown]
  - Oxygen saturation decreased [Unknown]
